FAERS Safety Report 17711499 (Version 3)
Quarter: 2020Q2

REPORT INFORMATION
  Report Type: Spontaneous
  Country: JP (occurrence: JP)
  Receive Date: 20200427
  Receipt Date: 20200615
  Transmission Date: 20200714
  Serious: Yes (Other)
  Sender: FDA-Public Use
  Company Number: JP-PFIZER INC-2020164726

PATIENT
  Age: 65 Year
  Sex: Male
  Weight: 60.5 kg

DRUGS (12)
  1. INLYTA [Suspect]
     Active Substance: AXITINIB
     Indication: RENAL CELL CARCINOMA
     Dosage: 5 MG, 2X/DAY
     Route: 048
     Dates: start: 20200317, end: 20200420
  2. BAVENCIO [Suspect]
     Active Substance: AVELUMAB
     Dosage: 620 MG, 1X/DAY
     Route: 042
     Dates: start: 20200421, end: 20200421
  3. INLYTA [Suspect]
     Active Substance: AXITINIB
     Dosage: 3 UNK
     Dates: start: 20200421
  4. RESTAMIN KOWA [Concomitant]
     Dosage: 10 MG, 1X/DAY
     Route: 048
     Dates: start: 20200317
  5. ACETAMINOPHEN. [Concomitant]
     Active Substance: ACETAMINOPHEN
     Dosage: 500 MG, 1X/DAY
     Route: 048
     Dates: start: 20200317
  6. METFORMIN [Concomitant]
     Active Substance: METFORMIN HYDROCHLORIDE
     Indication: DIABETES MELLITUS
     Dosage: 250 MG, 2X/DAY
     Route: 048
     Dates: start: 2013, end: 20200511
  7. TELMISARTAN. [Concomitant]
     Active Substance: TELMISARTAN
     Indication: HYPERTENSION
     Dosage: 40 MG, 1X/DAY
     Route: 048
     Dates: start: 2013
  8. BAVENCIO [Suspect]
     Active Substance: AVELUMAB
     Indication: RENAL CELL CARCINOMA
     Dosage: 670 MG, 1X/DAY
     Route: 042
     Dates: start: 20200317, end: 20200317
  9. BAVENCIO [Suspect]
     Active Substance: AVELUMAB
     Dosage: 645 MG, 1X/DAY
     Route: 042
     Dates: start: 20200402, end: 20200402
  10. CINAL [Concomitant]
     Indication: VITAMIN SUPPLEMENTATION
     Dosage: UNK, 1X/DAY
     Route: 048
     Dates: start: 2013
  11. FEBURIC [Concomitant]
     Active Substance: FEBUXOSTAT
     Indication: HYPERURICAEMIA
     Dosage: 20 MG, 1X/DAY
     Route: 048
     Dates: start: 2013
  12. BAVENCIO [Suspect]
     Active Substance: AVELUMAB
     Dosage: 620 MG, 1X/DAY
     Route: 042
     Dates: start: 20200507, end: 20200507

REACTIONS (6)
  - Dysphonia [Recovering/Resolving]
  - Malaise [Recovering/Resolving]
  - Hypertension [Recovered/Resolved]
  - Decreased appetite [Recovering/Resolving]
  - Diarrhoea [Recovering/Resolving]
  - Renal impairment [Recovering/Resolving]

NARRATIVE: CASE EVENT DATE: 20200324
